FAERS Safety Report 6300099-1 (Version None)
Quarter: 2009Q3

REPORT INFORMATION
  Report Type: 
  Country: None (occurrence: None)
  Receive Date: 20090806
  Receipt Date: 20090729
  Transmission Date: 20100115
  Serious: Yes (Other)
  Sender: FDA-Public Use
  Company Number: US-ABBOTT-09P-163-0587997-00

PATIENT
  Sex: Female
  Weight: 65.83 kg

DRUGS (13)
  1. HUMIRA [Suspect]
     Indication: CROHN'S DISEASE
  2. REMICADE [Suspect]
     Indication: CROHN'S DISEASE
     Dosage: PRIOR TO REGISTRATION
     Route: 042
  3. REMICADE [Suspect]
     Dates: start: 20020529
  4. REMICADE [Suspect]
     Dates: start: 20020806
  5. REMICADE [Suspect]
     Dates: start: 20030513
  6. REMICADE [Suspect]
     Dates: start: 20040804
  7. REMICADE [Suspect]
     Dates: start: 20050902
  8. ANTIBIOTICS [Suspect]
     Indication: CELLULITIS
     Dates: start: 20090601
  9. ANTIBIOTICS [Suspect]
     Indication: CROHN'S DISEASE
  10. QUESTRAN [Concomitant]
     Indication: DRUG USE FOR UNKNOWN INDICATION
  11. PRILOSEC [Concomitant]
     Indication: DRUG USE FOR UNKNOWN INDICATION
  12. MULTI-VITAMINS [Concomitant]
     Indication: DRUG USE FOR UNKNOWN INDICATION
  13. UNSPECIFIED NARCOTICS [Concomitant]
     Indication: DRUG USE FOR UNKNOWN INDICATION

REACTIONS (3)
  - CELLULITIS [None]
  - FALL [None]
  - OESOPHAGEAL CANDIDIASIS [None]
